FAERS Safety Report 9442205 (Version 1)
Quarter: 2013Q3

REPORT INFORMATION
  Report Type: Spontaneous
  Country: US (occurrence: US)
  Receive Date: 20130806
  Receipt Date: 20130806
  Transmission Date: 20140515
  Serious: No
  Sender: FDA-Public Use
  Company Number: US-009507513-1308USA002453

PATIENT
  Sex: Male

DRUGS (2)
  1. A+D MEDICATED OINTMENT [Suspect]
     Indication: RASH
     Dosage: UNK, UNKNOWN
     Route: 061
  2. A+D MEDICATED OINTMENT [Suspect]
     Indication: ERYTHEMA

REACTIONS (1)
  - Condition aggravated [Unknown]
